FAERS Safety Report 6204138-8 (Version None)
Quarter: 2009Q2

REPORT INFORMATION
  Report Type: 
  Country: None (occurrence: None)
  Receive Date: 20090526
  Receipt Date: 20090526
  Transmission Date: 20091009
  Serious: Yes (Other)
  Sender: FDA-Public Use
  Company Number: None

PATIENT
  Age: 68 Year
  Sex: Male
  Weight: 72 kg

DRUGS (2)
  1. TARGET 100 100MG RICHIE LAB.LTD, INDIA [Suspect]
     Indication: ERECTILE DYSFUNCTION
     Dosage: 100MG ONCE PO
     Route: 048
     Dates: start: 20090120, end: 20090518
  2. SIDENAFIL [Concomitant]

REACTIONS (5)
  - CHAPPED LIPS [None]
  - LIP DISORDER [None]
  - LIP SWELLING [None]
  - SKIN DISCOLOURATION [None]
  - SKIN EXFOLIATION [None]
